FAERS Safety Report 4819521-2 (Version None)
Quarter: 2005Q4

REPORT INFORMATION
  Report Type: 
  Country: None (occurrence: None)
  Receive Date: 20051103
  Receipt Date: 20050614
  Transmission Date: 20060501
  Serious: Yes (Hospitalization, Other)
  Sender: FDA-Public Use
  Company Number: 2005SE03558

PATIENT
  Age: 16 Year
  Sex: Female

DRUGS (10)
  1. SEROQUEL [Suspect]
     Indication: SCHIZOPHRENIA
     Dosage: START DOSE 50 MG, INCREASED IN INTERVALS OF 50 MG TO MAX 450 MG DURING 4-5 WEEKS OF TREATMENT
     Route: 048
     Dates: start: 20050501
  2. SEROQUEL [Suspect]
     Dosage: 150 MG + 300 MG
     Route: 048
     Dates: end: 20050613
  3. SEROQUEL [Suspect]
     Dosage: 150 MG + 100 MG
     Route: 048
     Dates: start: 20050614, end: 20050614
  4. SEROQUEL [Suspect]
     Route: 048
     Dates: start: 20050615, end: 20050615
  5. SEROQUEL [Suspect]
     Route: 048
     Dates: start: 20050616, end: 20050616
  6. ZYPREXA [Suspect]
     Route: 048
  7. ZYPREXA [Suspect]
     Route: 048
     Dates: end: 20050613
  8. ZYPREXA [Suspect]
     Dosage: 2.5 MG + 5 MG
     Route: 048
     Dates: start: 20050614, end: 20050614
  9. ZYPREXA [Suspect]
     Route: 048
     Dates: start: 20050615, end: 20050615
  10. VALLERGAN [Concomitant]
     Indication: INSOMNIA
     Route: 048

REACTIONS (13)
  - ABASIA [None]
  - ANXIETY [None]
  - CHILLS [None]
  - DIZZINESS [None]
  - DYSPNOEA [None]
  - HYPERHIDROSIS [None]
  - HYPERTENSION [None]
  - HYPOTENSION [None]
  - NAUSEA [None]
  - PALLOR [None]
  - PARAESTHESIA MUCOSAL [None]
  - PSYCHOTIC DISORDER [None]
  - TACHYCARDIA [None]
